FAERS Safety Report 10663805 (Version 1)
Quarter: 2014Q4

REPORT INFORMATION
  Report Type: Spontaneous
  Country: US (occurrence: None)
  Receive Date: 20141218
  Receipt Date: 20141218
  Transmission Date: 20150529
  Serious: Yes (Disabling)
  Sender: FDA-Public Use
  Company Number: None

PATIENT
  Age: 40 Year
  Sex: Female
  Weight: 54.43 kg

DRUGS (1)
  1. MIRENA [Suspect]
     Active Substance: LEVONORGESTREL
     Indication: CONTRACEPTION
     Route: 015

REACTIONS (11)
  - Adrenal disorder [None]
  - Depressed level of consciousness [None]
  - Fatigue [None]
  - Cystitis interstitial [None]
  - Insomnia [None]
  - Menopause [None]
  - Decreased appetite [None]
  - Amnesia [None]
  - Thyroiditis [None]
  - Myoclonus [None]
  - Depression [None]

NARRATIVE: CASE EVENT DATE: 20130915
